FAERS Safety Report 8975651 (Version 1)
Quarter: 2012Q4

REPORT INFORMATION
  Report Type: 
  Country: US (occurrence: US)
  Receive Date: 20121219
  Receipt Date: 20121219
  Transmission Date: 20130627
  Serious: Yes (Hospitalization)
  Sender: FDA-Public Use
  Company Number: US-AMGEN-USASP2012070903

PATIENT
  Age: 79 Year
  Sex: Female

DRUGS (4)
  1. PROLIA [Suspect]
     Indication: OSTEOPOROSIS POSTMENOPAUSAL
     Dosage: UNK
     Dates: start: 200912, end: 201206
  2. CALCIUM [Concomitant]
  3. VITAMIN D                          /00318501/ [Concomitant]
  4. BABY ASPIRIN [Concomitant]

REACTIONS (3)
  - Pancreatitis [Unknown]
  - Insomnia [Unknown]
  - Abdominal discomfort [Unknown]
